FAERS Safety Report 9948838 (Version 1)
Quarter: 2014Q1

REPORT INFORMATION
  Report Type: Spontaneous
  Country: US (occurrence: US)
  Receive Date: 20140304
  Receipt Date: 20140304
  Transmission Date: 20141002
  Serious: Yes (Hospitalization)
  Sender: FDA-Public Use
  Company Number: US-BIOGENIDEC-2014BI017506

PATIENT
  Sex: Female

DRUGS (15)
  1. TECFIDERA [Suspect]
     Indication: MULTIPLE SCLEROSIS
     Route: 048
     Dates: start: 20130611
  2. AMBIEN [Concomitant]
  3. CYMBALTA [Concomitant]
  4. DEXILANT [Concomitant]
  5. IMURAN [Concomitant]
  6. LYRICA [Concomitant]
  7. MACROBID [Concomitant]
  8. NEURONTIN [Concomitant]
  9. NEXIUM [Concomitant]
  10. PHENERGAN [Concomitant]
  11. PREMARIN [Concomitant]
  12. SINGULAIR [Concomitant]
  13. TIZANIDINE HCL [Concomitant]
  14. VICODIN ES [Concomitant]
  15. XANAX [Concomitant]

REACTIONS (3)
  - Cardiac flutter [Unknown]
  - Back pain [Unknown]
  - Alopecia [Unknown]
